FAERS Safety Report 8932374 (Version 6)
Quarter: 2014Q1

REPORT INFORMATION
  Report Type: Report from Study
  Country: FR (occurrence: FR)
  Receive Date: 20121128
  Receipt Date: 20140206
  Transmission Date: 20141002
  Serious: Yes (Death, Life-Threatening, Hospitalization)
  Sender: FDA-Public Use
  Company Number: PHHO2012FR016853

PATIENT
  Sex: 0

DRUGS (7)
  1. AFINITOR [Suspect]
     Indication: METASTATIC NEOPLASM
     Dosage: 10 MG, QD
     Route: 048
     Dates: start: 20120530, end: 20120711
  2. ZOMETA [Suspect]
     Dosage: UNK
     Dates: start: 201111
  3. DOLIPRANE [Suspect]
     Dosage: UNK
     Dates: start: 20120515
  4. ATACAND [Suspect]
     Indication: HYPERTENSION
     Dosage: UNK
  5. DUROGESIC [Concomitant]
     Dosage: 37.5 UG, UNK
     Dates: start: 201206
  6. KARDEGIC [Concomitant]
     Dosage: UNK
  7. OROCAL [Concomitant]
     Dosage: UNK
     Dates: start: 20111103

REACTIONS (13)
  - C-reactive protein increased [Not Recovered/Not Resolved]
  - White blood cell count increased [Not Recovered/Not Resolved]
  - General physical health deterioration [Fatal]
  - Lymphopenia [Not Recovered/Not Resolved]
  - Hyponatraemia [Not Recovered/Not Resolved]
  - Hyperkalaemia [Not Recovered/Not Resolved]
  - Blood cholesterol increased [Not Recovered/Not Resolved]
  - Blood urea increased [Not Recovered/Not Resolved]
  - Thrombocytopenia [Not Recovered/Not Resolved]
  - Gamma-glutamyltransferase increased [Not Recovered/Not Resolved]
  - Blood bilirubin increased [Not Recovered/Not Resolved]
  - Blood alkaline phosphatase increased [Not Recovered/Not Resolved]
  - Aspartate aminotransferase increased [Not Recovered/Not Resolved]
